FAERS Safety Report 17288048 (Version 1)
Quarter: 2020Q1

REPORT INFORMATION
  Report Type: Spontaneous
  Country: NL (occurrence: NL)
  Receive Date: 20200120
  Receipt Date: 20200120
  Transmission Date: 20200409
  Serious: Yes (Hospitalization)
  Sender: FDA-Public Use
  Company Number: NL-SUN PHARMACEUTICAL INDUSTRIES LTD-2020RR-233494

PATIENT
  Age: 69 Year
  Sex: Female
  Weight: 64 kg

DRUGS (5)
  1. CLARITHROMYCIN. [Suspect]
     Active Substance: CLARITHROMYCIN
     Indication: CELLULITIS
     Dosage: 1DD 1
     Route: 050
     Dates: start: 20191119, end: 20191122
  2. DOXYCYCLINE TABLET, 100 MG [Suspect]
     Active Substance: DOXYCYCLINE
     Indication: CELLULITIS
     Dosage: 1DD 100MG
     Route: 050
     Dates: start: 20191122, end: 20191125
  3. CEFAZOLINE INFUSIEVLOEISTOF, 100 MG/ML [Suspect]
     Active Substance: CEFAZOLIN
     Indication: CELLULITIS
     Dosage: 500MG 3DD
     Route: 050
     Dates: start: 20191127, end: 20191129
  4. LEVOFLOXACINE OMHULDE TABLET, 250 MG [Suspect]
     Active Substance: LEVOFLOXACIN
     Indication: CELLULITIS
     Dosage: 2DD 1
     Route: 050
     Dates: start: 20191125, end: 20191127
  5. HALOPERIDOL. [Concomitant]
     Active Substance: HALOPERIDOL
     Indication: PRODUCT USED FOR UNKNOWN INDICATION
     Dosage: UNK
     Route: 065

REACTIONS (4)
  - Toxic skin eruption [Recovering/Resolving]
  - Oedema [Recovering/Resolving]
  - Rash maculo-papular [Recovering/Resolving]
  - Erythema [Recovering/Resolving]

NARRATIVE: CASE EVENT DATE: 20191129
